FAERS Safety Report 8073793-2 (Version None)
Quarter: 2012Q1

REPORT INFORMATION
  Report Type: 
  Country: None (occurrence: None)
  Receive Date: 20120126
  Receipt Date: 20120121
  Transmission Date: 20120608
  Serious: Yes (Hospitalization)
  Sender: FDA-Public Use
  Company Number: US-ACTELION-A-NJ2012-59373

PATIENT

DRUGS (1)
  1. VENTAVIS [Suspect]
     Indication: PULMONARY ARTERIAL HYPERTENSION
     Dosage: UNK
     Route: 055
     Dates: start: 20111215, end: 20120123

REACTIONS (8)
  - BLOOD CREATININE INCREASED [None]
  - URINE OUTPUT DECREASED [None]
  - GENERAL PHYSICAL HEALTH DETERIORATION [None]
  - DYSPNOEA [None]
  - EATING DISORDER [None]
  - GAIT DISTURBANCE [None]
  - OEDEMA PERIPHERAL [None]
  - FATIGUE [None]
